FAERS Safety Report 22280091 (Version 2)
Quarter: 2023Q2

REPORT INFORMATION
  Report Type: Spontaneous
  Country: AU (occurrence: AU)
  Receive Date: 20230503
  Receipt Date: 20230517
  Transmission Date: 20230721
  Serious: Yes (Hospitalization, Other)
  Sender: FDA-Public Use
  Company Number: AU-MYLANLABS-2023M1046357

PATIENT
  Sex: Female

DRUGS (3)
  1. CLOZARIL [Suspect]
     Active Substance: CLOZAPINE
     Indication: Schizophrenia
     Dosage: 100 MILLIGRAM, QD (NIGHT)
     Route: 048
     Dates: start: 20150402
  2. EPILIM [Concomitant]
     Active Substance: VALPROATE SODIUM
     Dosage: 600 MILLIGRAM, BID
     Route: 065
  3. ESCITALOPRAM [Concomitant]
     Active Substance: ESCITALOPRAM OXALATE
     Dosage: 90 MILLIGRAM, QD (HIGH DOSE)
     Route: 065

REACTIONS (1)
  - Epilepsy [Unknown]
